FAERS Safety Report 4965215-2 (Version None)
Quarter: 2006Q1

REPORT INFORMATION
  Report Type: 
  Country: None (occurrence: None)
  Receive Date: 20060201
  Receipt Date: 20051213
  Transmission Date: 20060701
  Serious: No
  Sender: FDA-Public Use
  Company Number: 2005PV005793

PATIENT
  Sex: Male

DRUGS (4)
  1. BYETTA [Suspect]
     Indication: DIABETES MELLITUS NON-INSULIN-DEPENDENT
     Dosage: SEE IMAGE
     Route: 058
     Dates: start: 20051001, end: 20051128
  2. BYETTA [Suspect]
     Indication: DIABETES MELLITUS NON-INSULIN-DEPENDENT
     Dosage: SEE IMAGE
     Route: 058
     Dates: start: 20051129
  3. METFORMIN [Concomitant]
  4. AMARYL [Concomitant]

REACTIONS (4)
  - BLOOD GLUCOSE ABNORMAL [None]
  - DRUG EFFECT DECREASED [None]
  - WEIGHT DECREASED [None]
  - WEIGHT INCREASED [None]
